FAERS Safety Report 16095189 (Version 1)
Quarter: 2019Q1

REPORT INFORMATION
  Report Type: Spontaneous
  Country: US (occurrence: US)
  Receive Date: 20190218
  Receipt Date: 20190218
  Transmission Date: 20190418
  Serious: No
  Sender: FDA-Public Use
  Company Number: None

PATIENT
  Age: 5 Month
  Sex: Male

DRUGS (1)
  1. NEUPOGEN [Suspect]
     Active Substance: FILGRASTIM
     Dosage: STRENGTH 300MCG/ML
     Route: 058
     Dates: start: 201901

REACTIONS (2)
  - Product preparation issue [None]
  - Off label use [None]

NARRATIVE: CASE EVENT DATE: 20190218
